FAERS Safety Report 9911652 (Version 1)
Quarter: 2014Q1

REPORT INFORMATION
  Report Type: Spontaneous
  Country: BR (occurrence: BR)
  Receive Date: 20140219
  Receipt Date: 20140219
  Transmission Date: 20141002
  Serious: Yes (Hospitalization)
  Sender: FDA-Public Use
  Company Number: BR-PFIZER INC-2014042589

PATIENT
  Age: 78 Year
  Sex: Female

DRUGS (2)
  1. LIPITOR [Suspect]
     Indication: BLOOD CHOLESTEROL ABNORMAL
     Dosage: UNSPECIFIED DOSE, DAILY
     Dates: start: 20090213
  2. DRAMIN [Concomitant]
     Indication: DIZZINESS
     Dosage: UNSPECIFIED DOSAGE, 2X/DAY

REACTIONS (1)
  - Cerebrovascular accident [Unknown]
